FAERS Safety Report 8380471-9 (Version None)
Quarter: 2012Q2

REPORT INFORMATION
  Report Type: 
  Country: None (occurrence: None)
  Receive Date: 20120523
  Receipt Date: 20120516
  Transmission Date: 20120825
  Serious: Yes (Disabling, Congenital Anomaly)
  Sender: FDA-Public Use
  Company Number: FR-GLAXOSMITHKLINE-B0774877A

PATIENT
  Sex: Male

DRUGS (1)
  1. PAROXETINE HYDROCHLORIDE [Suspect]
     Indication: PRODUCT USED FOR UNKNOWN INDICATION
     Route: 064
     Dates: start: 20021001, end: 20030701

REACTIONS (4)
  - AUTISM SPECTRUM DISORDER [None]
  - FOETAL EXPOSURE DURING PREGNANCY [None]
  - ABNORMAL BEHAVIOUR [None]
  - CONGENITAL ANOMALY [None]
